FAERS Safety Report 7373576-2 (Version None)
Quarter: 2011Q1

REPORT INFORMATION
  Report Type: 
  Country: None (occurrence: None)
  Receive Date: 20110325
  Receipt Date: 20110318
  Transmission Date: 20110831
  Serious: No
  Sender: FDA-Public Use
  Company Number: JP-ELI_LILLY_AND_COMPANY-JP201103001754

PATIENT
  Sex: Female

DRUGS (4)
  1. CYMBALTA [Suspect]
     Indication: DEPRESSION
     Dosage: 40 MG, QD
  2. BENZALIN [Concomitant]
     Dosage: 10 MG, QD
  3. SILECE [Concomitant]
     Dosage: 4 MG, QD
  4. SEROQUEL [Concomitant]
     Dosage: 50 MG, QD

REACTIONS (1)
  - HEPATIC FUNCTION ABNORMAL [None]
